FAERS Safety Report 22361810 (Version 1)
Quarter: 2023Q2

REPORT INFORMATION
  Report Type: Spontaneous
  Country: US (occurrence: None)
  Receive Date: 20230524
  Receipt Date: 20230524
  Transmission Date: 20230721
  Serious: Yes (Other)
  Sender: FDA-Public Use
  Company Number: None

PATIENT
  Age: 64 Year
  Sex: Male

DRUGS (1)
  1. CAPECITABINE [Suspect]
     Active Substance: CAPECITABINE
     Dosage: FREQUENCY : TWICE A DAY;?
     Route: 048

REACTIONS (7)
  - Therapy interrupted [None]
  - Gastric disorder [None]
  - Vomiting [None]
  - Weight decreased [None]
  - Illness [None]
  - Product substitution issue [None]
  - Off label use [None]

NARRATIVE: CASE EVENT DATE: 20230524
